FAERS Safety Report 8014974-3 (Version None)
Quarter: 2011Q4

REPORT INFORMATION
  Report Type: 
  Country: None (occurrence: None)
  Receive Date: 20111230
  Receipt Date: 20111219
  Transmission Date: 20120403
  Serious: Yes (Death)
  Sender: FDA-Public Use
  Company Number: IT-BIOGENIDEC-2011BI037000

PATIENT
  Age: 44 Year
  Sex: Male

DRUGS (13)
  1. TYSABRI [Suspect]
     Route: 042
     Dates: start: 20090301, end: 20110912
  2. TYSABRI [Suspect]
     Route: 042
     Dates: start: 20090301, end: 20110912
  3. TYSABRI [Suspect]
     Route: 042
     Dates: start: 20090301, end: 20110912
  4. TYSABRI [Suspect]
     Route: 042
     Dates: start: 20090301, end: 20110912
  5. TYSABRI [Suspect]
     Route: 042
     Dates: start: 20090301, end: 20110912
  6. TYSABRI [Suspect]
     Route: 042
     Dates: start: 20090301, end: 20110912
  7. TYSABRI [Suspect]
     Indication: MULTIPLE SCLEROSIS
     Route: 042
     Dates: start: 20090301, end: 20110912
  8. TYSABRI [Suspect]
     Route: 042
     Dates: start: 20090301, end: 20110912
  9. TYSABRI [Suspect]
     Route: 042
     Dates: start: 20090301, end: 20110912
  10. TYSABRI [Suspect]
     Route: 042
     Dates: start: 20090301, end: 20110912
  11. TYSABRI [Suspect]
     Route: 042
     Dates: start: 20090301, end: 20110912
  12. TYSABRI [Suspect]
     Route: 042
     Dates: start: 20090301, end: 20110912
  13. TYSABRI [Suspect]
     Route: 042
     Dates: start: 20090301, end: 20110912

REACTIONS (1)
  - COMPLETED SUICIDE [None]
